FAERS Safety Report 5815896-6 (Version None)
Quarter: 2008Q3

REPORT INFORMATION
  Report Type: 
  Country: None (occurrence: None)
  Receive Date: 20080721
  Receipt Date: 20080715
  Transmission Date: 20090109
  Serious: Yes (Other)
  Sender: FDA-Public Use
  Company Number: ES-ABBOTT-08P-144-0463587-00

PATIENT
  Age: 55 Year
  Sex: Female

DRUGS (1)
  1. HUMIRA [Suspect]
     Indication: RHEUMATOID ARTHRITIS
     Dates: start: 20041103

REACTIONS (5)
  - NERVOUSNESS [None]
  - ORAL HERPES [None]
  - RASH [None]
  - TOOTH LOSS [None]
  - WEIGHT DECREASED [None]
